FAERS Safety Report 19070111 (Version 2)
Quarter: 2021Q2

REPORT INFORMATION
  Report Type: Report from Study
  Country: BR (occurrence: BR)
  Receive Date: 20210329
  Receipt Date: 20210521
  Transmission Date: 20210717
  Serious: Yes (Hospitalization)
  Sender: FDA-Public Use
  Company Number: PHHY2019BR064106

PATIENT
  Age: 48 Year
  Sex: Female

DRUGS (5)
  1. COSENTYX [Suspect]
     Active Substance: SECUKINUMAB
     Dosage: 300 MG
     Route: 065
     Dates: start: 202011
  2. COSENTYX [Suspect]
     Active Substance: SECUKINUMAB
     Dosage: 300 MG
     Route: 065
     Dates: start: 202103
  3. COSENTYX [Suspect]
     Active Substance: SECUKINUMAB
     Dosage: 300 MG
     Route: 065
     Dates: start: 201710
  4. COSENTYX [Suspect]
     Active Substance: SECUKINUMAB
     Indication: PSORIATIC ARTHROPATHY
     Dosage: 300 MG
     Route: 065
     Dates: start: 20171030
  5. COSENTYX [Suspect]
     Active Substance: SECUKINUMAB
     Dosage: 300 MG
     Route: 065
     Dates: start: 20210503

REACTIONS (11)
  - Influenza [Unknown]
  - Cough [Unknown]
  - Pain in extremity [Unknown]
  - Grip strength decreased [Not Recovered/Not Resolved]
  - Product dose omission issue [Unknown]
  - Anxiety [Unknown]
  - Psoriasis [Recovered/Resolved]
  - Rheumatoid arthritis [Recovering/Resolving]
  - Lymphadenopathy [Not Recovered/Not Resolved]
  - Onychomadesis [Unknown]
  - Foot deformity [Recovered/Resolved]

NARRATIVE: CASE EVENT DATE: 20210223
